FAERS Safety Report 19374655 (Version 2)
Quarter: 2021Q2

REPORT INFORMATION
  Report Type: Spontaneous
  Country: NL (occurrence: NL)
  Receive Date: 20210604
  Receipt Date: 20210614
  Transmission Date: 20210717
  Serious: Yes (Other)
  Sender: FDA-Public Use
  Company Number: NL-ACCORD-226888

PATIENT
  Age: 51 Year
  Sex: Female
  Weight: 101 kg

DRUGS (10)
  1. SULFASALAZINE. [Suspect]
     Active Substance: SULFASALAZINE
     Indication: RHEUMATOID ARTHRITIS
     Dosage: 2X PER DAY 1 TABLET
     Route: 065
     Dates: end: 20210225
  2. LEVOTHYROXINE. [Concomitant]
     Active Substance: LEVOTHYROXINE
     Indication: THYROID GLAND INJURY
     Dosage: 0.125 MG, QD
     Route: 065
  3. VOLTAREN [Concomitant]
     Active Substance: DICLOFENAC SODIUM
     Indication: RHEUMATIC DISORDER
     Dosage: UNK
     Route: 065
  4. METHOTREXATE. [Suspect]
     Active Substance: METHOTREXATE
     Indication: RHEUMATOID ARTHRITIS
     Dosage: 1 DF, QW (6 TABLETS)
     Route: 065
     Dates: start: 201909
  5. NAPROXEN. [Suspect]
     Active Substance: NAPROXEN
     Indication: INFLAMMATORY PAIN
     Dosage: 500 UNK
     Route: 065
  6. PARACETAMOL [Concomitant]
     Active Substance: ACETAMINOPHEN
     Indication: PAIN
     Dosage: 500 UNK (2X500 MULTIPLE TIMES IN DAY)
     Route: 065
  7. SULFASALAZINE. [Suspect]
     Active Substance: SULFASALAZINE
     Indication: RHEUMATOID ARTHRITIS
     Dosage: 2X PER DAY 1 TABLET
     Route: 065
     Dates: end: 20210225
  8. LEVOTHYROXINE. [Concomitant]
     Active Substance: LEVOTHYROXINE
     Indication: THYROID GLAND INJURY
     Dosage: 0.125 MG, QD
     Route: 065
  9. INFLUENZA VIRUS VACCINE POLYVA [Suspect]
     Active Substance: INFLUENZA VIRUS VACCINE
     Indication: PRODUCT USED FOR UNKNOWN INDICATION
     Dosage: UNK
     Route: 065
     Dates: start: 20201110, end: 20201110
  10. SULFASALAZINE. [Suspect]
     Active Substance: SULFASALAZINE
     Indication: RHEUMATOID ARTHRITIS
     Dosage: (2X PER DAY 2 AND 1 TABLET (BUILD?UP)
     Route: 065
     Dates: start: 20191117

REACTIONS (14)
  - Inflammation [Recovered/Resolved]
  - Epistaxis [Unknown]
  - Lacrimation increased [Unknown]
  - Muscle strength abnormal [Unknown]
  - Burning feet syndrome [Recovered/Resolved]
  - Urticaria [Recovered/Resolved]
  - Blood test abnormal [Unknown]
  - Neuropathy peripheral [Recovering/Resolving]
  - Hypotension [Unknown]
  - Oropharyngeal pain [Unknown]
  - Increased viscosity of upper respiratory secretion [Unknown]
  - Myalgia [Unknown]
  - Therapeutic response unexpected [Unknown]
  - Drug ineffective [Unknown]
